FAERS Safety Report 4301278-5 (Version None)
Quarter: 2004Q1

REPORT INFORMATION
  Report Type: 
  Country: None (occurrence: None)
  Receive Date: 20040219
  Receipt Date: 20040206
  Transmission Date: 20041129
  Serious: Yes (Hospitalization)
  Sender: FDA-Public Use
  Company Number: IE-JNJFOC-20040201555

PATIENT
  Age: 46 Year
  Sex: Female

DRUGS (6)
  1. REMICADE [Suspect]
     Indication: CROHN'S DISEASE
     Dosage: 270 MG, INTRAVENOUS
     Route: 042
     Dates: start: 20011122, end: 20030905
  2. ENTACORT (ECONACORT) [Concomitant]
  3. AZATHIOPRINE [Concomitant]
  4. PROTIUM (PANTOPRAZOLE SODIUM) [Concomitant]
  5. IMURAN [Concomitant]
  6. OXYCONTIN [Concomitant]

REACTIONS (2)
  - CARDIAC FAILURE CONGESTIVE [None]
  - RESPIRATORY TRACT INFECTION [None]
